FAERS Safety Report 11621401 (Version 1)
Quarter: 2015Q4

REPORT INFORMATION
  Report Type: Spontaneous
  Country: CA (occurrence: CA)
  Receive Date: 20151012
  Receipt Date: 20151012
  Transmission Date: 20160304
  Serious: Yes (Hospitalization, Other)
  Sender: FDA-Public Use
  Company Number: CA-HOSPIRA-3032072

PATIENT
  Sex: Male

DRUGS (2)
  1. BACLOFEN. [Suspect]
     Active Substance: BACLOFEN
     Indication: PRODUCT USED FOR UNKNOWN INDICATION
     Route: 037
  2. MORPHINE SULPHATE [Suspect]
     Active Substance: MORPHINE SULFATE
     Indication: PRODUCT USED FOR UNKNOWN INDICATION
     Route: 037

REACTIONS (5)
  - Enterobacter infection [Unknown]
  - Enterobacter test positive [Unknown]
  - Klebsiella test positive [Unknown]
  - Klebsiella infection [Unknown]
  - Implant site infection [Unknown]
